FAERS Safety Report 8906808 (Version 5)
Quarter: 2013Q4

REPORT INFORMATION
  Report Type: Report from Study
  Country: GB (occurrence: GB)
  Receive Date: 20121113
  Receipt Date: 20131203
  Transmission Date: 20140711
  Serious: Yes (Other)
  Sender: FDA-Public Use
  Company Number: GB-VERTEX PHARMACEUTICAL INC.-2012-022381

PATIENT
  Age: 44 Year
  Sex: Male

DRUGS (3)
  1. VX-950 (TELAPREVIR) [Suspect]
     Indication: HEPATITIS C
     Dosage: 750 MG, TID TABLET
     Route: 048
     Dates: start: 20120920, end: 20121210
  2. RIBAVIRIN [Suspect]
     Indication: HEPATITIS C
     Dosage: 600 G, BID
     Route: 048
     Dates: start: 20120921
  3. PEG INTERFERON [Suspect]
     Indication: HEPATITIS C
     Dosage: DOSAGE FORM: INJECTION
     Route: 058
     Dates: start: 20120920

REACTIONS (12)
  - Lethargy [Unknown]
  - Anaemia [Recovered/Resolved]
  - Anorectal discomfort [Unknown]
  - Proctalgia [Recovered/Resolved]
  - Rash [None]
  - Nausea [Recovered/Resolved]
  - Hypotension [Not Recovered/Not Resolved]
  - Fatigue [Not Recovered/Not Resolved]
  - Pruritus [None]
  - Anal pruritus [None]
  - Nausea [Not Recovered/Not Resolved]
  - Anaemia [Recovered/Resolved]
